FAERS Safety Report 24933043 (Version 3)
Quarter: 2025Q1

REPORT INFORMATION
  Report Type: Spontaneous
  Country: US (occurrence: None)
  Receive Date: 20250206
  Receipt Date: 20250228
  Transmission Date: 20250408
  Serious: Yes (Other)
  Sender: MDD OPERATIONS
  Company Number: US-MDD US Operations-MDD202501-000282

PATIENT
  Age: 65 Year
  Sex: Female
  Weight: 83.91 kg

DRUGS (9)
  1. APOKYN [Suspect]
     Active Substance: APOMORPHINE HYDROCHLORIDE
     Indication: Parkinson^s disease
     Route: 058
     Dates: start: 20250121
  2. APOKYN [Suspect]
     Active Substance: APOMORPHINE HYDROCHLORIDE
     Dates: start: 2025, end: 202502
  3. APOKYN [Suspect]
     Active Substance: APOMORPHINE HYDROCHLORIDE
     Route: 058
     Dates: start: 20250214
  4. LIPITOR [Concomitant]
     Active Substance: ATORVASTATIN CALCIUM
  5. RYTARY [Concomitant]
     Active Substance: CARBIDOPA\LEVODOPA
     Route: 048
  6. LISINOPRIL [Concomitant]
     Active Substance: LISINOPRIL
     Dosage: NOT PROVIDED
  7. ALBUTEROL [Concomitant]
     Active Substance: ALBUTEROL
  8. TORSEMIDE [Concomitant]
     Active Substance: TORSEMIDE
  9. MELATONIN [Concomitant]
     Active Substance: MELATONIN
     Dosage: NOT PROVIDED

REACTIONS (6)
  - Dystonia [Unknown]
  - Influenza [Unknown]
  - Staphylococcal infection [Unknown]
  - Tremor [Recovering/Resolving]
  - Headache [Unknown]
  - Drug effect less than expected [Unknown]

NARRATIVE: CASE EVENT DATE: 20250101
